FAERS Safety Report 4381666-1 (Version None)
Quarter: 2004Q2

REPORT INFORMATION
  Report Type: 
  Country: None (occurrence: None)
  Receive Date: 20040603
  Receipt Date: 20031017
  Transmission Date: 20050107
  Serious: Yes (Other)
  Sender: FDA-Public Use
  Company Number: 200318125US

PATIENT
  Age: 86 Year
  Sex: Male

DRUGS (7)
  1. LOVENOX [Suspect]
     Indication: PROPHYLAXIS
     Dosage: 40 MG QD SC
     Route: 058
     Dates: start: 20030827
  2. LOVENOX [Suspect]
     Indication: PROPHYLAXIS
     Dosage: 90 MG Q12H  SC
     Route: 058
     Dates: end: 20030901
  3. ASPIRIN [Concomitant]
  4. VANCOMYCIN [Concomitant]
  5. PIPERACILLIN SODIUM [Concomitant]
  6. TAZOBACTAM SODIUM (ZOSYN) [Concomitant]
  7. METHYLPREDNISOLONE SODIUM SUCCINATE (SOLU-MEDROL) [Concomitant]

REACTIONS (5)
  - DEEP VEIN THROMBOSIS [None]
  - ECCHYMOSIS [None]
  - HAEMATOMA [None]
  - HAEMATURIA [None]
  - HAEMOGLOBIN DECREASED [None]
